FAERS Safety Report 19906879 (Version 3)
Quarter: 2021Q4

REPORT INFORMATION
  Report Type: Report from Study
  Country: CA (occurrence: CA)
  Receive Date: 20210930
  Receipt Date: 20211005
  Transmission Date: 20220303
  Serious: Yes (Hospitalization, Other)
  Sender: FDA-Public Use
  Company Number: CA-BIOGEN-2021BI01053192

PATIENT
  Sex: Female

DRUGS (3)
  1. TYSABRI [Suspect]
     Active Substance: NATALIZUMAB
     Indication: Maternal exposure timing unspecified
     Route: 064
     Dates: start: 20121022
  2. TYSABRI [Suspect]
     Active Substance: NATALIZUMAB
     Route: 064
     Dates: start: 20121022, end: 20200109
  3. TYSABRI [Suspect]
     Active Substance: NATALIZUMAB
     Route: 064
     Dates: start: 20200109

REACTIONS (7)
  - Somnolence neonatal [Unknown]
  - Dehydration [Unknown]
  - Bradycardia neonatal [Unknown]
  - Foetal exposure during pregnancy [Unknown]
  - Meconium aspiration syndrome [Unknown]
  - Neonatal aspiration [Unknown]
  - Weight decreased [Unknown]
